FAERS Safety Report 9717865 (Version 1)
Quarter: 2013Q4

REPORT INFORMATION
  Report Type: Spontaneous
  Country: US (occurrence: US)
  Receive Date: 20131127
  Receipt Date: 20131127
  Transmission Date: 20140711
  Serious: No
  Sender: FDA-Public Use
  Company Number: US-009507513-1311USA011306

PATIENT
  Age: 26 Year
  Sex: Female

DRUGS (2)
  1. CLARITIN-D [Suspect]
     Indication: NASOPHARYNGITIS
     Dosage: UNK, UNKNOWN
     Route: 048
  2. CLARITIN-D [Suspect]
     Indication: SINUS CONGESTION

REACTIONS (4)
  - Exposure during pregnancy [Unknown]
  - Off label use [Unknown]
  - Drug effect decreased [Unknown]
  - Drug effect delayed [Unknown]
